FAERS Safety Report 8837785 (Version 2)
Quarter: 2012Q4

REPORT INFORMATION
  Report Type: 
  Country: JP (occurrence: JP)
  Receive Date: 20121012
  Receipt Date: 20121212
  Transmission Date: 20130627
  Serious: Yes (Other)
  Sender: FDA-Public Use
  Company Number: JP-009507513-1210JPN001659

PATIENT
  Age: 55 Year
  Sex: Female
  Weight: 57 kg

DRUGS (9)
  1. PEGINTRON [Suspect]
     Indication: CHRONIC HEPATITIS C
     Dosage: 1.5 Microgram per kilogram, qw
     Route: 058
     Dates: start: 20120808
  2. REBETOL [Suspect]
     Indication: CHRONIC HEPATITIS C
     Dosage: 400 mg, qd
     Route: 048
     Dates: start: 20120808, end: 20120904
  3. REBETOL [Suspect]
     Dosage: 200 mg, qd
     Route: 048
     Dates: start: 20120905
  4. TELAVIC [Suspect]
     Indication: CHRONIC HEPATITIS C
     Dosage: 1500 mg, qd
     Route: 048
     Dates: start: 20120808, end: 20121030
  5. URSO [Concomitant]
     Indication: CHRONIC HEPATITIS C
     Dosage: 900 mg, qd, POR formulation
     Route: 048
     Dates: end: 20120822
  6. RIZE [Concomitant]
     Indication: NEUROSIS
     Dosage: 15 mg, qd
     Route: 048
  7. DEPAS [Concomitant]
     Indication: NEUROSIS
     Dosage: 0.25 mg, qd
     Route: 048
  8. TAKEPRON [Concomitant]
     Indication: GASTROOESOPHAGEAL REFLUX DISEASE
     Dosage: 15 mg, qd, POR formulation
     Route: 048
  9. REBAMIPIDE [Concomitant]
     Indication: PROPHYLAXIS
     Dosage: 100 mg, qd
     Route: 048
     Dates: start: 20120926

REACTIONS (2)
  - Hyperuricaemia [Recovered/Resolved]
  - Hyperuricaemia [Recovered/Resolved]
